FAERS Safety Report 18883096 (Version 1)
Quarter: 2021Q1

REPORT INFORMATION
  Report Type: Spontaneous
  Country: FR (occurrence: FR)
  Receive Date: 20210212
  Receipt Date: 20210212
  Transmission Date: 20210420
  Serious: Yes (Hospitalization)
  Sender: FDA-Public Use
  Company Number: FR-TEVA-2021-FR-1878317

PATIENT
  Age: 55 Year
  Sex: Female
  Weight: 53 kg

DRUGS (14)
  1. PHLOROGLUCINOL (TRIMETHYL ETHER DU) [Concomitant]
     Active Substance: 1,3,5-TRIMETHOXYBENZENE
  2. PARACETAMOL [Concomitant]
     Active Substance: ACETAMINOPHEN
  3. METOCLOPRAMIDE. [Concomitant]
     Active Substance: METOCLOPRAMIDE
  4. MESNA. [Concomitant]
     Active Substance: MESNA
  5. ONDANSETRON [Concomitant]
     Active Substance: ONDANSETRON
  6. RACECADOTRIL [Concomitant]
     Active Substance: RACECADOTRIL
  7. CHLORHYDRATE DE MIANSERINE [Concomitant]
     Active Substance: MIANSERIN HYDROCHLORIDE
  8. APREPITANT. [Concomitant]
     Active Substance: APREPITANT
  9. BROMAZEPAM [Concomitant]
     Active Substance: BROMAZEPAM
  10. METHYLPREDNISOLONE. [Concomitant]
     Active Substance: METHYLPREDNISOLONE
  11. FORLAX [Concomitant]
     Active Substance: POLYETHYLENE GLYCOL 4000
  12. MORPHINE [Concomitant]
     Active Substance: MORPHINE
  13. DOXORUBICINE [Suspect]
     Active Substance: DOXORUBICIN
     Indication: SARCOMA
     Dosage: 30 MG
     Route: 042
     Dates: start: 20201209, end: 20201210
  14. HOLOXAN 2 G, LYOPHILISAT POUR SOLUTION INJECTABLE [Suspect]
     Active Substance: IFOSFAMIDE
     Indication: SARCOMA
     Dosage: 3800 MG
     Route: 042
     Dates: start: 20201209, end: 20201210

REACTIONS (3)
  - Encephalopathy [Recovered/Resolved]
  - Acute kidney injury [Recovered/Resolved]
  - Pancytopenia [Recovered/Resolved]

NARRATIVE: CASE EVENT DATE: 20201211
